FAERS Safety Report 17106724 (Version 1)
Quarter: 2019Q4

REPORT INFORMATION
  Report Type: Spontaneous
  Country: US (occurrence: US)
  Receive Date: 20191203
  Receipt Date: 20191203
  Transmission Date: 20200122
  Serious: No
  Sender: FDA-Public Use
  Company Number: US-009507513-1912USA000861

PATIENT
  Age: 71 Year
  Sex: Male

DRUGS (1)
  1. PREVYMIS [Suspect]
     Active Substance: LETERMOVIR
     Indication: CYTOMEGALOVIRUS CHORIORETINITIS
     Dosage: 480 MILLIGRAM, QD
     Route: 048

REACTIONS (1)
  - Off label use [Unknown]
